FAERS Safety Report 9618094 (Version 3)
Quarter: 2013Q4

REPORT INFORMATION
  Report Type: Report from Study
  Country: IT (occurrence: IT)
  Receive Date: 20131013
  Receipt Date: 20131029
  Transmission Date: 20140711
  Serious: Yes (Hospitalization)
  Sender: FDA-Public Use
  Company Number: IT-TEVA-433126USA

PATIENT
  Age: 75 Year
  Sex: Male

DRUGS (4)
  1. BENDAMUSTINE [Suspect]
     Indication: MANTLE CELL LYMPHOMA
     Route: 042
     Dates: start: 20130722, end: 20130725
  2. CYTARABINE [Suspect]
     Indication: MANTLE CELL LYMPHOMA
     Dosage: UNKNOWN/D
     Route: 042
     Dates: start: 20130722, end: 20130725
  3. PIPERACILLIN SODIUM W/TAZOBACTAM [Concomitant]
     Dosage: 4G/0.5G
     Route: 042
     Dates: start: 20130802, end: 20130807
  4. FLUCONAZOLE [Concomitant]
     Route: 042
     Dates: start: 20130802, end: 20130807

REACTIONS (2)
  - Pancytopenia [Recovered/Resolved]
  - Febrile neutropenia [Recovered/Resolved]
